FAERS Safety Report 5831075-0 (Version None)
Quarter: 2008Q3

REPORT INFORMATION
  Report Type: 
  Country: None (occurrence: None)
  Receive Date: 20080801
  Receipt Date: 20080327
  Transmission Date: 20090109
  Serious: No
  Sender: FDA-Public Use
  Company Number: US-BRISTOL-MYERS SQUIBB COMPANY-14128599

PATIENT
  Age: 58 Year
  Sex: Male

DRUGS (1)
  1. COUMADIN [Suspect]
     Dosage: 1 DOSAGE FORM = 5MG ON MON,WED,FRI AND 4MG ON TUE,THUR,SAT,SUN.
     Dates: start: 20080201

REACTIONS (1)
  - ARTHRALGIA [None]
